FAERS Safety Report 7866673-6 (Version None)
Quarter: 2011Q4

REPORT INFORMATION
  Report Type: 
  Country: None (occurrence: None)
  Receive Date: 20111028
  Receipt Date: 20110720
  Transmission Date: 20120403
  Serious: No
  Sender: FDA-Public Use
  Company Number: US-GLAXOSMITHKLINE-A0938380A

PATIENT
  Age: 35 Year
  Sex: Male
  Weight: 183 kg

DRUGS (1)
  1. ADVAIR DISKUS 100/50 [Suspect]
     Dosage: 1PUFF EIGHT TIMES PER DAY
     Route: 055
     Dates: start: 20110101, end: 20110101

REACTIONS (3)
  - PANIC REACTION [None]
  - ACCIDENTAL OVERDOSE [None]
  - DRUG ADMINISTRATION ERROR [None]
